FAERS Safety Report 5618267-0 (Version None)
Quarter: 2008Q1

REPORT INFORMATION
  Report Type: 
  Country: None (occurrence: None)
  Receive Date: 20080207
  Receipt Date: 20080128
  Transmission Date: 20080703
  Serious: Yes (Hospitalization)
  Sender: FDA-Public Use
  Company Number: US-ROCHE-489386

PATIENT
  Age: 66 Year
  Sex: Female

DRUGS (3)
  1. BONIVA [Suspect]
     Indication: OSTEOPOROSIS
     Route: 048
     Dates: start: 20060901, end: 20061001
  2. BONIVA [Suspect]
     Route: 048
     Dates: start: 20070501, end: 20070902
  3. ASPIRIN [Concomitant]
     Dates: start: 19970101

REACTIONS (5)
  - ABDOMINAL DISTENSION [None]
  - DUODENAL ULCER [None]
  - GASTRIC DISORDER [None]
  - OESOPHAGEAL ULCER [None]
  - PYLORIC STENOSIS [None]
